FAERS Safety Report 7120225-4 (Version None)
Quarter: 2010Q4

REPORT INFORMATION
  Report Type: 
  Country: None (occurrence: None)
  Receive Date: 20101123
  Receipt Date: 20101111
  Transmission Date: 20110411
  Serious: Yes (Congenital Anomaly)
  Sender: FDA-Public Use
  Company Number: GB-GILEAD-2010-0030218

PATIENT
  Sex: Female
  Weight: 3.22 kg

DRUGS (4)
  1. TRUVADA [Suspect]
     Indication: PROPHYLAXIS AGAINST HIV INFECTION
     Route: 064
     Dates: start: 20050809
  2. VIREAD [Suspect]
     Indication: PROPHYLAXIS AGAINST HIV INFECTION
     Route: 064
  3. ZIAGEN [Concomitant]
     Indication: PROPHYLAXIS AGAINST HIV INFECTION
     Route: 064
     Dates: start: 20050809
  4. KALETRA [Concomitant]
     Indication: PROPHYLAXIS AGAINST HIV INFECTION
     Route: 064
     Dates: start: 20050809

REACTIONS (1)
  - CONGENITAL CARDIOVASCULAR ANOMALY [None]
